FAERS Safety Report 21141525 (Version 1)
Quarter: 2022Q3

REPORT INFORMATION
  Report Type: Spontaneous
  Country: US (occurrence: None)
  Receive Date: 20220727
  Receipt Date: 20220727
  Transmission Date: 20221027
  Serious: Yes (Life-Threatening, Other)
  Sender: FDA-Public Use
  Company Number: None

PATIENT
  Sex: 0

DRUGS (2)
  1. MAGNESIUM CITRATE [Suspect]
     Active Substance: MAGNESIUM CITRATE
     Indication: Preoperative care
     Dosage: OTHER QUANTITY : 1 BOTTLE 10 FL OZ;?FREQUENCY : DAILY;?
     Route: 048
     Dates: start: 20220720, end: 20220720
  2. TRIUMEQ [Concomitant]
     Active Substance: ABACAVIR SULFATE\DOLUTEGRAVIR SODIUM\LAMIVUDINE

REACTIONS (3)
  - Fatigue [None]
  - Haematochezia [None]
  - Frequent bowel movements [None]

NARRATIVE: CASE EVENT DATE: 20220722
